FAERS Safety Report 14852570 (Version 1)
Quarter: 2018Q2

REPORT INFORMATION
  Report Type: Spontaneous
  Country: US (occurrence: US)
  Receive Date: 20180507
  Receipt Date: 20180507
  Transmission Date: 20180711
  Serious: Yes (Hospitalization)
  Sender: FDA-Public Use
  Company Number: US-ALLERGAN-1823916US

PATIENT
  Age: 18 Year
  Sex: Female
  Weight: 83.9 kg

DRUGS (13)
  1. MENINGOCOCCAL POLYSACCHARIDE VACCINE A NOS [Suspect]
     Active Substance: MENINGOCOCCAL POLYSACCHARIDE VACCINE A\NEISSERIA MENINGITIDIS GROUP A CAPSULAR POLYSACCHARIDE ANTIGEN
     Indication: IMMUNISATION
     Dosage: UNK UNK, SINGLE
     Route: 030
     Dates: start: 20170727, end: 20170727
  2. MENINGOCOCCAL POLYSACCHARIDE VACCINE A NOS [Suspect]
     Active Substance: MENINGOCOCCAL POLYSACCHARIDE VACCINE A\NEISSERIA MENINGITIDIS GROUP A CAPSULAR POLYSACCHARIDE ANTIGEN
     Dosage: UNK, SINGLE
     Route: 030
     Dates: start: 20170915, end: 20170915
  3. ZIPRASIDONE HCL [Suspect]
     Active Substance: ZIPRASIDONE HYDROCHLORIDE
     Indication: NEGATIVISM
     Dosage: 20 MG, QHS
     Route: 048
     Dates: start: 20170912, end: 20170915
  4. BUSPIRONE [Concomitant]
     Active Substance: BUSPIRONE HYDROCHLORIDE
     Indication: NEGATIVISM
     Dosage: UNK UNK, UNKNOWN
     Route: 065
     Dates: start: 20150929, end: 20170915
  5. CELEXA [Suspect]
     Active Substance: CITALOPRAM HYDROBROMIDE
     Indication: NEGATIVISM
     Dosage: 20 MG, QD
     Route: 048
     Dates: start: 20170703, end: 20170829
  6. DROSPIRENONE [Concomitant]
     Active Substance: DROSPIRENONE
     Indication: MENSTRUATION IRREGULAR
     Dosage: UNK UNK, UNKNOWN
     Route: 065
     Dates: start: 20170822
  7. ZOLPIDEM TARTRATE. [Concomitant]
     Active Substance: ZOLPIDEM TARTRATE
     Indication: INSOMNIA
     Dosage: UNK UNK, UNKNOWN
     Route: 065
     Dates: start: 20170508
  8. ESCITALOPRAM OXALATE. [Concomitant]
     Active Substance: ESCITALOPRAM OXALATE
     Indication: NEGATIVISM
     Dosage: 10 MG, QD
     Route: 048
     Dates: start: 20170829, end: 20170905
  9. TRILEPTAL [Concomitant]
     Active Substance: OXCARBAZEPINE
     Indication: NEGATIVISM
     Dosage: UNK UNK, UNKNOWN
     Route: 065
     Dates: start: 20160929
  10. GIANVI [Concomitant]
     Active Substance: DROSPIRENONE\ETHINYL ESTRADIOL
     Indication: MENSTRUATION IRREGULAR
     Dosage: UNK
     Dates: start: 20170822
  11. CELEXA [Suspect]
     Active Substance: CITALOPRAM HYDROBROMIDE
     Dosage: 20 MG, BID
     Route: 048
     Dates: start: 20170913, end: 20170915
  12. ESCITALOPRAM OXALATE. [Concomitant]
     Active Substance: ESCITALOPRAM OXALATE
     Dosage: 10 MG, QD
     Route: 048
     Dates: start: 20170912, end: 20170915
  13. ESCITALOPRAM OXALATE. [Concomitant]
     Active Substance: ESCITALOPRAM OXALATE
     Dosage: 20 MG, QD
     Route: 048
     Dates: start: 20170905, end: 20170912

REACTIONS (6)
  - Pain in extremity [Unknown]
  - Diplopia [Recovering/Resolving]
  - Vision blurred [Recovering/Resolving]
  - Suicide attempt [Recovered/Resolved]
  - Hallucination [Unknown]
  - Overdose [Unknown]

NARRATIVE: CASE EVENT DATE: 20170915
